FAERS Safety Report 19622211 (Version 1)
Quarter: 2021Q3

REPORT INFORMATION
  Report Type: Spontaneous
  Country: US (occurrence: US)
  Receive Date: 20210728
  Receipt Date: 20210728
  Transmission Date: 20211014
  Serious: Yes (Other)
  Sender: FDA-Public Use
  Company Number: US-COOPERSURGICAL, INC.-US-2021CPS002049

PATIENT
  Age: 38 Year
  Sex: Female
  Weight: 67.12 kg

DRUGS (3)
  1. ATORVASTATIN [Concomitant]
     Active Substance: ATORVASTATIN
     Indication: BLOOD CHOLESTEROL INCREASED
     Route: 065
  2. PARAGARD T 380A [Suspect]
     Active Substance: COPPER
     Indication: CONTRACEPTION
     Dosage: UNK
     Route: 015
     Dates: start: 201001, end: 20210517
  3. METFORMIN [Concomitant]
     Active Substance: METFORMIN HYDROCHLORIDE
     Indication: TYPE 2 DIABETES MELLITUS
     Route: 065

REACTIONS (11)
  - Complication of device removal [Recovered/Resolved]
  - Diverticulitis [Recovered/Resolved]
  - Vaginal infection [Unknown]
  - Type 2 diabetes mellitus [Not Recovered/Not Resolved]
  - Amenorrhoea [Recovered/Resolved]
  - Ovarian abscess [Recovered/Resolved]
  - Foreign body in reproductive tract [Recovered/Resolved]
  - Intentional device use issue [Recovered/Resolved]
  - Device breakage [Recovered/Resolved]
  - Blood cholesterol increased [Not Recovered/Not Resolved]
  - Anxiety [Recovered/Resolved]

NARRATIVE: CASE EVENT DATE: 201001
